FAERS Safety Report 16408505 (Version 1)
Quarter: 2019Q2

REPORT INFORMATION
  Report Type: Spontaneous
  Country: US (occurrence: US)
  Receive Date: 20190610
  Receipt Date: 20190610
  Transmission Date: 20190711
  Serious: No
  Sender: FDA-Public Use
  Company Number: US-LUPIN PHARMACEUTICALS INC.-2018-03487

PATIENT
  Sex: Female
  Weight: 95.69 kg

DRUGS (3)
  1. TEMAZEPAM CAPSULES, USP, 30 MG [Suspect]
     Active Substance: TEMAZEPAM
     Dosage: 30 MG, QD
     Route: 048
     Dates: end: 20180425
  2. GLIPIZIDE. [Concomitant]
     Active Substance: GLIPIZIDE
     Indication: DIABETES MELLITUS
     Dosage: 30 MG, QD
     Route: 048
     Dates: start: 1998
  3. TEMAZEPAM CAPSULES, USP, 30 MG [Suspect]
     Active Substance: TEMAZEPAM
     Indication: SLEEP DISORDER
     Dosage: 30 MG, QD
     Route: 048
     Dates: start: 201711

REACTIONS (1)
  - Cough [Recovered/Resolved]
